FAERS Safety Report 10029740 (Version 1)
Quarter: 2014Q1

REPORT INFORMATION
  Report Type: Spontaneous
  Country: US (occurrence: None)
  Receive Date: 20140321
  Receipt Date: 20140321
  Transmission Date: 20141002
  Serious: Yes (Hospitalization)
  Sender: FDA-Public Use
  Company Number: None

PATIENT
  Age: 93 Year
  Sex: Male

DRUGS (3)
  1. ZYTIGA 250MG JANSSEN BIOTECH, INC. [Suspect]
     Route: 048
     Dates: start: 20140214
  2. TAMSULOSIN [Concomitant]
  3. PREDNISONE [Concomitant]

REACTIONS (2)
  - Urinary tract infection [None]
  - Confusional state [None]
